FAERS Safety Report 9401476 (Version 1)
Quarter: 2013Q3

REPORT INFORMATION
  Report Type: Spontaneous
  Country: ES (occurrence: ES)
  Receive Date: 20130716
  Receipt Date: 20130716
  Transmission Date: 20140515
  Serious: Yes (Other)
  Sender: FDA-Public Use
  Company Number: ES-ROCHE-1247763

PATIENT
  Age: 39 Year
  Sex: Female

DRUGS (5)
  1. INVIRASE [Suspect]
     Indication: HIV INFECTION
     Route: 065
  2. INTERFERON ALFA-2A [Suspect]
     Indication: HEPATITIS C
     Route: 065
  3. RIBAVIRIN [Suspect]
     Indication: HEPATITIS C
     Route: 065
  4. KIVEXA [Suspect]
     Indication: HIV INFECTION
     Route: 065
  5. KALETRA [Suspect]
     Indication: HIV INFECTION
     Route: 065

REACTIONS (3)
  - Cutaneous sarcoidosis [Recovered/Resolved]
  - Pulmonary sarcoidosis [Recovered/Resolved]
  - Haemolysis [Unknown]
